FAERS Safety Report 18227107 (Version 1)
Quarter: 2020Q3

REPORT INFORMATION
  Report Type: Spontaneous
  Country: US (occurrence: US)
  Receive Date: 20200903
  Receipt Date: 20200903
  Transmission Date: 20201103
  Serious: No
  Sender: FDA-Public Use
  Company Number: US-PFIZER INC-2020340983

PATIENT
  Age: 53 Year
  Sex: Female

DRUGS (1)
  1. DUAVEE [Suspect]
     Active Substance: BAZEDOXIFENE ACETATE\ESTROGENS, CONJUGATED
     Dosage: 1 DF (1 TABLET EVERY 3 DAYS)

REACTIONS (4)
  - Irritability [Unknown]
  - Menopausal symptoms [Unknown]
  - Intentional product misuse [Unknown]
  - Anxiety [Unknown]
